FAERS Safety Report 14549442 (Version 1)
Quarter: 2018Q1

REPORT INFORMATION
  Report Type: Spontaneous
  Country: GB (occurrence: GB)
  Receive Date: 20180219
  Receipt Date: 20180219
  Transmission Date: 20180509
  Serious: Yes (Death, Other)
  Sender: FDA-Public Use
  Company Number: GB-CONCORDIA PHARMACEUTICALS INC.-E2B_00009916

PATIENT
  Age: 93 Year
  Sex: Female
  Weight: 57 kg

DRUGS (9)
  1. ORAMORPH [Concomitant]
     Active Substance: MORPHINE SULFATE
  2. BUTRANS [Concomitant]
     Active Substance: BUPRENORPHINE
  3. PREDNISOLONE. [Suspect]
     Active Substance: PREDNISOLONE
     Indication: ASTHMA
     Route: 048
     Dates: start: 19950101, end: 20171219
  4. AMOXICILLIN. [Concomitant]
     Active Substance: AMOXICILLIN
  5. PARACETAMOL [Concomitant]
     Active Substance: ACETAMINOPHEN
  6. LORAZEPAM. [Concomitant]
     Active Substance: LORAZEPAM
  7. TEMAZEPAM. [Concomitant]
     Active Substance: TEMAZEPAM
  8. SALBUTAMOL [Concomitant]
     Active Substance: ALBUTEROL
  9. OMEPRAZOLE. [Concomitant]
     Active Substance: OMEPRAZOLE

REACTIONS (2)
  - Peptic ulcer perforation [Fatal]
  - Abdominal pain [Not Recovered/Not Resolved]

NARRATIVE: CASE EVENT DATE: 20171214
